FAERS Safety Report 4408595-9 (Version None)
Quarter: 2004Q3

REPORT INFORMATION
  Report Type: 
  Country: None (occurrence: None)
  Receive Date: 20040723
  Receipt Date: 20040712
  Transmission Date: 20050211
  Serious: Yes (Other)
  Sender: FDA-Public Use
  Company Number: GB-JNJFOC-20040702507

PATIENT
  Age: 63 Year
  Sex: Female

DRUGS (4)
  1. REMICADE [Suspect]
     Indication: RHEUMATOID ARTHRITIS
     Dosage: 186MG - 200MG
     Dates: start: 20020419, end: 20040623
  2. METHOTREXATE [Concomitant]
  3. FOLIC ACID [Concomitant]
  4. IBUPROFEN [Concomitant]

REACTIONS (4)
  - CHEST DISCOMFORT [None]
  - DYSPNOEA [None]
  - INFUSION RELATED REACTION [None]
  - PAIN [None]
